FAERS Safety Report 6631488-3 (Version None)
Quarter: 2010Q1

REPORT INFORMATION
  Report Type: 
  Country: None (occurrence: None)
  Receive Date: 20100312
  Receipt Date: 20100301
  Transmission Date: 20100710
  Serious: Yes (Hospitalization, Other)
  Sender: FDA-Public Use
  Company Number: PHHY2010GB05468

PATIENT
  Sex: Male

DRUGS (17)
  1. CLOZARIL [Suspect]
     Indication: SCHIZOPHRENIA
     Dosage: UNK
     Dates: start: 19951205, end: 20100216
  2. CITALOPRAM HYDROBROMIDE [Concomitant]
     Dosage: 40 MG, QD
  3. CHEMOTHERAPEUTICS NOS [Concomitant]
  4. DOCUSATE SODIUM [Concomitant]
     Dosage: 200 MG, TID
  5. ARIPIPRAZOLE [Concomitant]
     Dosage: 10 MG, QD
  6. ADCAL [Concomitant]
     Dosage: 600 MG, BID
  7. PARACETAMOL [Concomitant]
  8. DIFFLAM [Concomitant]
     Dosage: 500 MG, PRN
     Route: 048
  9. MORPHINE SULFATE [Concomitant]
     Dosage: 10 MG, 1 TAB EVERY 10HRS
  10. MORPHINE SULFATE [Concomitant]
     Dosage: 15 MG, 1 TAB EVERY 12 HRS
  11. SIMVASTATIN [Concomitant]
     Dosage: 20 MG, QD
  12. RANITIDINE [Concomitant]
     Dosage: 300 MG, QD
  13. ALLOPURINOL [Concomitant]
     Dosage: 100 MG, BID
  14. LACTULOSE [Concomitant]
     Dosage: 10 ML, TID
  15. SENNA [Concomitant]
     Dosage: 2 TABS, BD
  16. DEXAMETHASONE [Concomitant]
  17. ORAMORPH SR [Concomitant]
     Dosage: 3.55 ML, PRN

REACTIONS (4)
  - FALL [None]
  - METASTASES TO BONE [None]
  - NEOPLASM MALIGNANT [None]
  - PLATELET COUNT DECREASED [None]
